FAERS Safety Report 22874679 (Version 3)
Quarter: 2024Q3

REPORT INFORMATION
  Report Type: Other
  Country: CA (occurrence: CA)
  Receive Date: 20230828
  Receipt Date: 20240924
  Transmission Date: 20241016
  Serious: Yes (Other)
  Sender: INTERCEPT PHARMACEUTICALS
  Company Number: CA-INTERCEPT-PM2022000511

PATIENT
  Age: 77 Year
  Sex: Female

DRUGS (4)
  1. OCALIVA [Suspect]
     Active Substance: OBETICHOLIC ACID
     Indication: Primary biliary cholangitis
     Dosage: 5 MG, QD
     Route: 048
     Dates: start: 20211214
  2. OCALIVA [Suspect]
     Active Substance: OBETICHOLIC ACID
     Dosage: 5 MG, QOD
     Route: 048
     Dates: start: 2022
  3. OCALIVA [Suspect]
     Active Substance: OBETICHOLIC ACID
     Dosage: 5 MG, QD
     Route: 048
  4. URSODIOL [Concomitant]
     Active Substance: URSODIOL
     Dosage: 750 MG, QD
     Dates: start: 2012

REACTIONS (13)
  - Ankle operation [Recovered/Resolved]
  - Joint injury [Recovered/Resolved]
  - Nocturia [Not Recovered/Not Resolved]
  - Fall [Recovered/Resolved]
  - Limb injury [Recovered/Resolved]
  - Dry eye [Unknown]
  - Eye irritation [Unknown]
  - Skin wrinkling [Unknown]
  - Emotional distress [Unknown]
  - Incision site impaired healing [Recovered/Resolved]
  - Insomnia [Not Recovered/Not Resolved]
  - Asthenia [Unknown]
  - Pruritus [Unknown]

NARRATIVE: CASE EVENT DATE: 20220405
